FAERS Safety Report 24276078 (Version 3)
Quarter: 2024Q4

REPORT INFORMATION
  Report Type: Spontaneous
  Country: US (occurrence: US)
  Receive Date: 20240903
  Receipt Date: 20241003
  Transmission Date: 20250115
  Serious: No
  Sender: IPSEN
  Company Number: US-IPSEN Group, Research and Development-2024-16821

PATIENT
  Age: 41 Year
  Sex: Female
  Weight: 64 kg

DRUGS (4)
  1. DYSPORT [Suspect]
     Active Substance: ABOBOTULINUMTOXINA
     Indication: Skin wrinkling
     Dosage: 59 UNITS OF DYSPORT TO HER UPPER FACE (GLABELLA: 20 UNITS TOTAL, FRONTALIS: 20 UNITS TOTAL, CROW^S F
     Route: 065
     Dates: start: 20240807, end: 20240807
  2. DYSPORT [Suspect]
     Active Substance: ABOBOTULINUMTOXINA
     Indication: Skin wrinkling
     Dosage: 59 UNITS OF DYSPORT TO HER UPPER FACE (GLABELLA: 20 UNITS TOTAL, FRONTALIS: 20 UNITS TOTAL, CROW^S F
     Route: 065
     Dates: start: 202408, end: 202408
  3. DYSPORT [Suspect]
     Active Substance: ABOBOTULINUMTOXINA
     Indication: Off label use
  4. DYSPORT [Suspect]
     Active Substance: ABOBOTULINUMTOXINA
     Indication: Skin wrinkling

REACTIONS (4)
  - Drug ineffective [Unknown]
  - Off label use [Unknown]
  - Off label use [Unknown]
  - Product preparation error [Unknown]

NARRATIVE: CASE EVENT DATE: 20240801
